FAERS Safety Report 7274059-0 (Version None)
Quarter: 2011Q1

REPORT INFORMATION
  Report Type: 
  Country: None (occurrence: None)
  Receive Date: 20110204
  Receipt Date: 20110124
  Transmission Date: 20110831
  Serious: Yes (Other)
  Sender: FDA-Public Use
  Company Number: DE-SANOFI-AVENTIS-2011SA004400

PATIENT
  Age: 75 Year
  Sex: Female
  Weight: 50.1 kg

DRUGS (12)
  1. RANITIDINE [Concomitant]
     Dates: start: 20060928
  2. FLURAZEPAM [Concomitant]
  3. ATORVASTATIN [Concomitant]
  4. CLEMASTINE FUMARATE [Concomitant]
     Dates: start: 20060928
  5. NAVOBAN [Concomitant]
     Dates: start: 20060928
  6. BELOC-ZOK [Concomitant]
  7. LEVOFLOXACIN [Suspect]
     Indication: PRODUCT USED FOR UNKNOWN INDICATION
     Route: 048
     Dates: start: 20061001, end: 20061012
  8. NEUPOGEN [Suspect]
     Indication: CHEMOTHERAPY
  9. BLOPRESS [Concomitant]
  10. DOCETAXEL [Suspect]
  11. DEXAMETHASONE [Suspect]
  12. ASPIRIN [Concomitant]

REACTIONS (1)
  - TENDON RUPTURE [None]
